FAERS Safety Report 9409805 (Version 1)
Quarter: 2013Q2

REPORT INFORMATION
  Report Type: Spontaneous
  Country: US (occurrence: None)
  Receive Date: 20130605
  Receipt Date: 20130605
  Transmission Date: 20140414
  Serious: Yes (Other)
  Sender: FDA-Public Use
  Company Number: VAL_02548_2013

PATIENT
  Sex: Female

DRUGS (5)
  1. BENAZEPRIL [Suspect]
     Indication: PRODUCT USED FOR UNKNOWN INDICATION
     Dosage: (DF)
  2. AMLODIPINE [Suspect]
     Indication: PRODUCT USED FOR UNKNOWN INDICATION
     Dosage: (DF)
  3. SYNTHROID [Concomitant]
  4. TOPROL [Concomitant]
  5. ASPIRIN [Concomitant]

REACTIONS (3)
  - Myocardial infarction [None]
  - Sensation of heaviness [None]
  - Paraesthesia oral [None]
